FAERS Safety Report 10375090 (Version 2)
Quarter: 2014Q3

REPORT INFORMATION
  Report Type: Spontaneous
  Country: DE (occurrence: DE)
  Receive Date: 20140811
  Receipt Date: 20140811
  Transmission Date: 20150326
  Serious: Yes (Other)
  Sender: FDA-Public Use
  Company Number: DE-OPTIMER-20140194

PATIENT
  Age: 88 Year
  Sex: Male
  Weight: 72 kg

DRUGS (11)
  1. DIFICLIR [Suspect]
     Active Substance: FIDAXOMICIN
     Indication: CLOSTRIDIUM DIFFICILE COLITIS
     Dosage: 200 MG, 2 X 1
     Route: 048
     Dates: start: 20140623, end: 20140703
  2. RAMIPRIL 1A PHARMA [Concomitant]
     Active Substance: RAMIPRIL
     Dosage: 1 IN THE MORNING AND 1 IN THE EVENING
  3. VANCOMYCIN [Concomitant]
     Active Substance: VANCOMYCIN
     Indication: CLOSTRIDIUM DIFFICILE COLITIS
     Dosage: 250 MG, 3 X 1
     Route: 048
     Dates: start: 20140523, end: 20140531
  4. PLETAL [Concomitant]
     Active Substance: CILOSTAZOL
     Dosage: 1 IN THE MORNING AND 1 IN THE EVENING
  5. NOVAMINSULFON 1 A PHARMA [Concomitant]
     Dosage: 3X20 DROPS
  6. METOPROLOL SUCC CT [Concomitant]
     Dosage: 1 IN THE MORNING AND 1 IN THE EVENING
  7. TAMSULOSIN 1A PHARMA [Concomitant]
     Dosage: 1 IN THE EVENING
  8. DIGIMERCK [Concomitant]
     Active Substance: DIGITOXIN
     Dosage: 1 IN THE MORNING
  9. VANCOMYCIN [Concomitant]
     Active Substance: VANCOMYCIN
     Dosage: UNK
     Route: 048
     Dates: start: 20140616, end: 20140622
  10. ASPIRIN PROTECT [Concomitant]
     Active Substance: ASPIRIN
     Dosage: 1 IN THE MORNING
  11. ZOLPIDEM AL [Concomitant]
     Dosage: PRN EVENINGS

REACTIONS (2)
  - Anosmia [Not Recovered/Not Resolved]
  - Ageusia [Not Recovered/Not Resolved]

NARRATIVE: CASE EVENT DATE: 20140628
